FAERS Safety Report 21828209 (Version 2)
Quarter: 2024Q1

REPORT INFORMATION
  Report Type: Spontaneous
  Country: US (occurrence: US)
  Receive Date: 20230106
  Receipt Date: 20240105
  Transmission Date: 20240410
  Serious: No
  Sender: FDA-Public Use
  Company Number: US-COOPERSURGICAL, INC.-US-2022CPS002781

PATIENT
  Age: 18 Year
  Sex: Female
  Weight: 46.712 kg

DRUGS (2)
  1. PARAGARD T 380A [Suspect]
     Active Substance: COPPER
     Indication: Contraception
     Dosage: UNK
     Route: 015
     Dates: start: 20220809, end: 20220809
  2. LOESTRIN 1/20 21 DAY [Concomitant]
     Active Substance: ETHINYL ESTRADIOL\NORETHINDRONE ACETATE
     Indication: Contraception
     Route: 065

REACTIONS (1)
  - Complication of device insertion [Recovered/Resolved]

NARRATIVE: CASE EVENT DATE: 20220809
